FAERS Safety Report 16617439 (Version 2)
Quarter: 2019Q4

REPORT INFORMATION
  Report Type: Report from Study
  Country: US (occurrence: US)
  Receive Date: 20190723
  Receipt Date: 20191204
  Transmission Date: 20200122
  Serious: No
  Sender: FDA-Public Use
  Company Number: PHEH2019US030159

PATIENT
  Sex: Female

DRUGS (1)
  1. COSENTYX [Suspect]
     Active Substance: SECUKINUMAB
     Indication: PSORIASIS
     Dosage: 300 MG, Q2W
     Route: 058

REACTIONS (5)
  - Alopecia [Unknown]
  - Psoriasis [Recovered/Resolved]
  - Pruritus [Recovered/Resolved]
  - Therapeutic product effect delayed [Not Recovered/Not Resolved]
  - Malaise [Recovered/Resolved]
